FAERS Safety Report 5179288-8 (Version None)
Quarter: 2006Q4

REPORT INFORMATION
  Report Type: 
  Country: None (occurrence: None)
  Receive Date: 20061211
  Receipt Date: 20061128
  Transmission Date: 20070319
  Serious: Yes (Hospitalization)
  Sender: FDA-Public Use
  Company Number: HQWYE740302AUG06

PATIENT
  Age: 37 Year
  Sex: Male
  Weight: 90.8 kg

DRUGS (15)
  1. NEORAL [Suspect]
     Indication: PROPHYLAXIS AGAINST TRANSPLANT REJECTION
     Dosage: 200 MG 1X PER 1 DAY, ORAL
     Route: 048
     Dates: start: 20030903
  2. CELLCEPT [Concomitant]
  3. PREDNISONE TAB [Concomitant]
  4. GABAPENTIN [Concomitant]
  5. AUGMENTIN '125' [Concomitant]
  6. CALCIUM CHLORIDE BIOTIKA (CALCIUM CHLORIDE DIHYDRATE) [Concomitant]
  7. CARDURA [Concomitant]
  8. LIPITOR [Concomitant]
  9. RENAGEL (SEVELAMER) [Concomitant]
  10. ALLOPURINOL [Concomitant]
  11. HYDRALAZINE HCL [Concomitant]
  12. METOPROLOL TARTRATE [Concomitant]
  13. LASIX [Concomitant]
  14. AMOXICILLIN [Concomitant]
  15. ARANESP [Concomitant]

REACTIONS (8)
  - ANAL SPHINCTER ATONY [None]
  - BLOOD CREATININE INCREASED [None]
  - BLOOD PRESSURE INCREASED [None]
  - FAECAL INCONTINENCE [None]
  - HAEMATOCRIT DECREASED [None]
  - HERPES ZOSTER [None]
  - MYELITIS TRANSVERSE [None]
  - RECTAL ABSCESS [None]
